FAERS Safety Report 4827583-1 (Version None)
Quarter: 2005Q4

REPORT INFORMATION
  Report Type: 
  Country: None (occurrence: None)
  Receive Date: 20051114
  Receipt Date: 20051107
  Transmission Date: 20060501
  Serious: Yes (Death, Hospitalization)
  Sender: FDA-Public Use
  Company Number: US-JNJFOC-20051102428

PATIENT
  Sex: Female
  Weight: 181.44 kg

DRUGS (2)
  1. RISPERDAL [Suspect]
     Route: 048
  2. DIET PILL (UNSPECIFIED) [Concomitant]

REACTIONS (1)
  - PULMONARY EMBOLISM [None]
